FAERS Safety Report 4357022-9 (Version None)
Quarter: 2004Q2

REPORT INFORMATION
  Report Type: 
  Country: None (occurrence: None)
  Receive Date: 20040512
  Receipt Date: 20040210
  Transmission Date: 20050107
  Serious: Yes (Hospitalization, Other)
  Sender: FDA-Public Use
  Company Number: PHEH2004US01750

PATIENT
  Age: 66 Year
  Sex: Male
  Weight: 106 kg

DRUGS (11)
  1. SANDIMMUNE [Suspect]
     Indication: IDIOPATHIC THROMBOCYTOPENIC PURPURA
     Dosage: 100 MG, TID
     Route: 048
  2. CARDIZEM [Concomitant]
  3. COLACE [Concomitant]
  4. HYDROCHLOROTHIAZIDE [Concomitant]
  5. KAYEXALATE [Concomitant]
  6. PREVACID [Concomitant]
  7. METAMUCIL ^PROCTER + GAMBLE^ [Concomitant]
  8. FLOMAX ^BOEHRINGER INGELHEIM^ [Concomitant]
  9. ADVAIR DISKUS 100/50 [Concomitant]
  10. NEXIUM [Concomitant]
  11. CELLCEPT [Concomitant]

REACTIONS (3)
  - BLOOD CREATINE PHOSPHOKINASE INCREASED [None]
  - MYALGIA [None]
  - PLATELET COUNT DECREASED [None]
